FAERS Safety Report 7475088-4 (Version None)
Quarter: 2011Q2

REPORT INFORMATION
  Report Type: 
  Country: None (occurrence: None)
  Receive Date: 20110512
  Receipt Date: 20110422
  Transmission Date: 20111010
  Serious: No
  Sender: FDA-Public Use
  Company Number: US-B.I. PHARMACEUTICALS,INC./RIDGEFIELD-2011-BP-07958BP

PATIENT
  Age: 92 Year
  Sex: Female

DRUGS (11)
  1. PRADAXA [Suspect]
     Indication: ATRIAL FIBRILLATION
     Dosage: 300 MG
     Route: 048
     Dates: start: 20110307, end: 20110313
  2. PRADAXA [Suspect]
     Indication: TRANSIENT ISCHAEMIC ATTACK
  3. DICLOFENAC SODIUM [Concomitant]
     Dosage: 75 MG
  4. PROAIR HFA [Concomitant]
  5. NEXIUM [Concomitant]
     Dosage: 40 MG
  6. PRAVASTATIN [Concomitant]
     Dosage: 80 MG
  7. ASPIRIN [Concomitant]
     Dosage: 162 MG
  8. IMDUR [Concomitant]
     Dosage: 90 MG
  9. FLOVENT [Concomitant]
     Dosage: 220 MG
  10. METAMUCIL-2 [Concomitant]
  11. TOPROL-XL [Concomitant]

REACTIONS (2)
  - COLITIS [None]
  - HAEMATOCHEZIA [None]
